FAERS Safety Report 10196375 (Version 1)
Quarter: 2014Q2

REPORT INFORMATION
  Report Type: Spontaneous
  Country: US (occurrence: None)
  Receive Date: 20140523
  Receipt Date: 20140523
  Transmission Date: 20141212
  Serious: No
  Sender: FDA-Public Use
  Company Number: None

PATIENT
  Age: 53 Year
  Sex: Male

DRUGS (3)
  1. DOXAZOSIN MESYLATE [Suspect]
     Indication: HYPERTENSION
     Dates: start: 20101105, end: 20121214
  2. MULTIPLE CAM PRODUCTS [Suspect]
     Dates: end: 201211
  3. HERBAL TEAS [Suspect]
     Indication: ILL-DEFINED DISORDER
     Dates: start: 2009, end: 201211

REACTIONS (4)
  - Hepatitis acute [None]
  - Cholestasis [None]
  - Pruritus [None]
  - Drug-induced liver injury [None]
